FAERS Safety Report 8776454 (Version 1)
Quarter: 2012Q4

REPORT INFORMATION
  Report Type: Report from Study
  Country: CA (occurrence: CA)
  Receive Date: 20120910
  Receipt Date: 20120910
  Transmission Date: 20130627
  Serious: Yes (Hospitalization, Other)
  Sender: FDA-Public Use
  Company Number: CA-JNJFOC-20120901205

PATIENT
  Age: 19 Year
  Sex: Female
  Weight: 46.5 kg

DRUGS (8)
  1. REMICADE [Suspect]
     Indication: CROHN^S DISEASE
     Route: 042
     Dates: start: 20120831
  2. REMICADE [Suspect]
     Indication: CROHN^S DISEASE
     Route: 042
     Dates: start: 20120718, end: 20120802
  3. ZOPICLONE [Concomitant]
     Route: 065
  4. CORTIFOAM [Concomitant]
     Route: 065
  5. HYDROMORPHONE [Concomitant]
     Route: 065
  6. GRAVOL [Concomitant]
     Dosage: as needed
     Route: 048
  7. PREDNISONE [Concomitant]
     Route: 048
  8. SALOFALK [Concomitant]
     Route: 054

REACTIONS (3)
  - Hospitalisation [Unknown]
  - Anaphylactic shock [Unknown]
  - Tachycardia [Unknown]
